FAERS Safety Report 4749400-0 (Version None)
Quarter: 2005Q3

REPORT INFORMATION
  Report Type: 
  Country: None (occurrence: None)
  Receive Date: 20050819
  Receipt Date: 20050419
  Transmission Date: 20060218
  Serious: Yes (Other)
  Sender: FDA-Public Use
  Company Number: US-MERCK-0504USA03719

PATIENT
  Age: 55 Year
  Sex: Male
  Weight: 73 kg

DRUGS (3)
  1. VIOXX [Suspect]
     Indication: MUSCULOSKELETAL DISCOMFORT
     Route: 048
     Dates: start: 20020101, end: 20030501
  2. COUMADIN [Concomitant]
     Indication: MITRAL VALVE REPLACEMENT
     Route: 048
     Dates: start: 19890401
  3. LANOXIN [Concomitant]
     Indication: MITRAL VALVE REPLACEMENT
     Route: 048

REACTIONS (7)
  - ANXIETY DISORDER [None]
  - ATRIAL FIBRILLATION [None]
  - DIABETES MELLITUS [None]
  - GOUT [None]
  - HERNIA [None]
  - HYPERTENSION [None]
  - MYOCARDIAL INFARCTION [None]
